FAERS Safety Report 13235862 (Version 1)
Quarter: 2017Q1

REPORT INFORMATION
  Report Type: Spontaneous
  Country: US (occurrence: US)
  Receive Date: 20170215
  Receipt Date: 20170215
  Transmission Date: 20170428
  Serious: No
  Sender: FDA-Public Use
  Company Number: US-MYLANLABS-2016M1005629

PATIENT
  Age: 25 Year
  Sex: Female
  Weight: 48.73 kg

DRUGS (1)
  1. CHATEAL [Suspect]
     Active Substance: ETHINYL ESTRADIOL\LEVONORGESTREL
     Indication: CONTRACEPTION
     Dosage: 0.15MG/0.03MG
     Route: 048
     Dates: start: 20160117, end: 20160125

REACTIONS (4)
  - Acne [Not Recovered/Not Resolved]
  - Headache [Recovered/Resolved]
  - Pruritus [Not Recovered/Not Resolved]
  - Skin burning sensation [Not Recovered/Not Resolved]

NARRATIVE: CASE EVENT DATE: 20160117
